FAERS Safety Report 5934718-6 (Version None)
Quarter: 2008Q4

REPORT INFORMATION
  Report Type: 
  Country: None (occurrence: None)
  Receive Date: 20081029
  Receipt Date: 20081023
  Transmission Date: 20090506
  Serious: No
  Sender: FDA-Public Use
  Company Number: US-B.I. PHARMACEUTICALS,INC./RIDGEFIELD-2008-BP-16204BP

PATIENT
  Age: 46 Year
  Sex: Female

DRUGS (3)
  1. MICARDIS [Suspect]
     Indication: HYPERTENSION
     Dosage: 40MG
     Route: 048
     Dates: start: 20081017
  2. ADVAIR DISKUS 100/50 [Concomitant]
     Indication: ASTHMA
  3. INHALER (UNSPECIFIED) [Concomitant]
     Indication: ASTHMA

REACTIONS (1)
  - HEADACHE [None]
